FAERS Safety Report 9160079 (Version 2)
Quarter: 2013Q2

REPORT INFORMATION
  Report Type: Spontaneous
  Country: BR (occurrence: BR)
  Receive Date: 20130313
  Receipt Date: 20130416
  Transmission Date: 20140414
  Serious: Yes (Hospitalization, Other)
  Sender: FDA-Public Use
  Company Number: PHHY2013BR023256

PATIENT
  Age: 50 Year
  Sex: Female
  Weight: 59 kg

DRUGS (1)
  1. GLIVEC [Suspect]
     Indication: CHRONIC MYELOID LEUKAEMIA
     Dosage: 800 MG, DAILY (400 MG, 1 TABLET IN MORNING AND 1 TABLET AT LUNCH TIME)
     Route: 048

REACTIONS (17)
  - Chest pain [Recovered/Resolved]
  - Effusion [Recovered/Resolved]
  - Eye haemorrhage [Recovered/Resolved]
  - Retinal vascular disorder [Recovered/Resolved]
  - Chorioretinopathy [Recovered/Resolved]
  - Maculopathy [Recovered/Resolved]
  - Ocular hypertension [Unknown]
  - Gait disturbance [Not Recovered/Not Resolved]
  - Nausea [Recovered/Resolved]
  - Electrocardiogram abnormal [Recovered/Resolved]
  - Blindness [Unknown]
  - Lacrimation increased [Recovered/Resolved]
  - Myalgia [Not Recovered/Not Resolved]
  - Back pain [Not Recovered/Not Resolved]
  - Pain in extremity [Not Recovered/Not Resolved]
  - Calcium deficiency [Not Recovered/Not Resolved]
  - Eye discharge [Recovering/Resolving]
